FAERS Safety Report 6500429-1 (Version None)
Quarter: 2009Q4

REPORT INFORMATION
  Report Type: 
  Country: None (occurrence: None)
  Receive Date: 20091216
  Receipt Date: 20091211
  Transmission Date: 20100525
  Serious: Yes (Death, Hospitalization)
  Sender: FDA-Public Use
  Company Number: PHHY2009JP37386

PATIENT
  Sex: Male

DRUGS (6)
  1. NEORAL [Suspect]
     Indication: DERMATITIS ATOPIC
     Dosage: 180 MG DAILY
     Route: 048
     Dates: start: 20090813, end: 20090827
  2. MYSER [Concomitant]
     Dosage: UNK
     Route: 061
     Dates: start: 20080724
  3. GARASONE [Concomitant]
     Dosage: UNK
     Route: 061
     Dates: start: 20090615
  4. ALLELOCK [Concomitant]
     Dosage: 10 MG
     Route: 048
     Dates: start: 20080718
  5. POLARAMINE [Concomitant]
     Dosage: 4 MG
     Route: 048
     Dates: start: 20080718
  6. ATARAX [Concomitant]
     Dosage: 25 MG
     Route: 048
     Dates: start: 20080718

REACTIONS (7)
  - CARDIAC VALVE VEGETATION [None]
  - DISSEMINATED INTRAVASCULAR COAGULATION [None]
  - ENDOCARDITIS [None]
  - RENAL ABSCESS [None]
  - RESPIRATORY DEPRESSION [None]
  - SEPSIS [None]
  - SPLENIC ABSCESS [None]
